FAERS Safety Report 10064830 (Version 2)
Quarter: 2014Q2

REPORT INFORMATION
  Report Type: Spontaneous
  Country: US (occurrence: None)
  Receive Date: 20140404
  Receipt Date: 20140612
  Transmission Date: 20141212
  Serious: No
  Sender: FDA-Public Use
  Company Number: 2014-US-003790

PATIENT
  Age: 52 Year
  Sex: Male
  Weight: 83.9 kg

DRUGS (9)
  1. XYREM [Suspect]
     Indication: NARCOLEPSY
     Dates: start: 201311, end: 2014
  2. XYREM [Suspect]
     Indication: CATAPLEXY
     Dates: start: 201311, end: 2014
  3. METHYLPHENIDATE (METHYLPHENIDATE HYDROCHLORIDE) [Concomitant]
  4. ALLOPURINOL (ALLOPURINOL) [Concomitant]
  5. TESTOSTERONE (TESTOSTERONE) [Concomitant]
  6. IBUPROFEN (IBUPROFEN) [Concomitant]
  7. IMITREX (SUMATRIPTAN SUCCINATE) [Concomitant]
  8. UROXATROL (ALFUZOSIN HYDROCHLORIDE) [Concomitant]
  9. TRAZODONE (TRAZODONE) [Concomitant]

REACTIONS (6)
  - Hypoglycaemia [None]
  - Dizziness [None]
  - Performance status decreased [None]
  - Malaise [None]
  - Somnolence [None]
  - Intentional product misuse [None]
